FAERS Safety Report 8266615-8 (Version None)
Quarter: 2012Q2

REPORT INFORMATION
  Report Type: 
  Country: None (occurrence: None)
  Receive Date: 20120406
  Receipt Date: 20120319
  Transmission Date: 20120825
  Serious: Yes (Hospitalization)
  Sender: FDA-Public Use
  Company Number: JP-BAXTER-2012BH006919

PATIENT
  Age: 66 Year
  Sex: Male

DRUGS (12)
  1. RABEPRAZOLE SODIUM [Concomitant]
     Indication: GASTRIC ULCER
     Route: 048
     Dates: start: 20111021
  2. ATELEC [Concomitant]
     Indication: HYPERTENSION
     Route: 048
     Dates: start: 20111021
  3. METOCLOPRAMIDE [Concomitant]
     Indication: ANTI-NEUTROPHIL CYTOPLASMIC ANTIBODY POSITIVE VASCULITIS
     Route: 042
     Dates: start: 20120117, end: 20120117
  4. PREDNISOLONE [Suspect]
     Indication: ANTI-NEUTROPHIL CYTOPLASMIC ANTIBODY POSITIVE VASCULITIS
     Route: 048
     Dates: start: 20111021
  5. LACTULOSE [Concomitant]
     Indication: CONSTIPATION
     Route: 048
     Dates: start: 20111021
  6. FOIPAN [Concomitant]
     Indication: PANCREATITIS CHRONIC
     Route: 048
     Dates: start: 20111021
  7. BACTRIM [Concomitant]
     Indication: INFECTION PROPHYLAXIS
     Route: 048
     Dates: start: 20111021
  8. PRIMPERAN TAB [Concomitant]
     Indication: ANTI-NEUTROPHIL CYTOPLASMIC ANTIBODY POSITIVE VASCULITIS
     Route: 065
     Dates: start: 20120117
  9. CYTOXAN [Suspect]
     Indication: ANTI-NEUTROPHIL CYTOPLASMIC ANTIBODY POSITIVE VASCULITIS
     Route: 041
     Dates: start: 20120117, end: 20120117
  10. CYTOXAN [Suspect]
     Route: 041
     Dates: start: 20120214, end: 20120214
  11. BERIZYM [Concomitant]
     Indication: PANCREATITIS CHRONIC
     Route: 048
     Dates: start: 20111021
  12. SODIUM CHLORIDE [Concomitant]
     Indication: ANTI-NEUTROPHIL CYTOPLASMIC ANTIBODY POSITIVE VASCULITIS
     Route: 042
     Dates: start: 20120117, end: 20120117

REACTIONS (1)
  - PANCREATITIS ACUTE [None]
